FAERS Safety Report 8530871-9 (Version None)
Quarter: 2012Q3

REPORT INFORMATION
  Report Type: 
  Country: None (occurrence: None)
  Receive Date: 20120723
  Receipt Date: 20120713
  Transmission Date: 20120928
  Serious: Yes (Other)
  Sender: FDA-Public Use
  Company Number: US-ROCHE-1088158

PATIENT
  Sex: Female

DRUGS (2)
  1. AVASTIN [Suspect]
     Indication: RETINAL VEIN OCCLUSION
     Dates: start: 20100101
  2. RANIBIZUMAB [Suspect]
     Indication: RETINAL VEIN OCCLUSION

REACTIONS (10)
  - ROAD TRAFFIC ACCIDENT [None]
  - FALL [None]
  - ASTHENIA [None]
  - RIB FRACTURE [None]
  - OCULAR HYPERAEMIA [None]
  - EYE PAIN [None]
  - PRODUCTIVE COUGH [None]
  - DIZZINESS [None]
  - VISUAL IMPAIRMENT [None]
  - HAND FRACTURE [None]
